FAERS Safety Report 12670301 (Version 2)
Quarter: 2016Q3

REPORT INFORMATION
  Report Type: Report from Study
  Country: DE (occurrence: DE)
  Receive Date: 20160822
  Receipt Date: 20160905
  Transmission Date: 20161109
  Serious: Yes (Hospitalization)
  Sender: FDA-Public Use
  Company Number: DE-ROCHE-1814313

PATIENT
  Age: 69 Year
  Sex: Male
  Weight: 80.8 kg

DRUGS (6)
  1. PERTUZUMAB [Suspect]
     Active Substance: PERTUZUMAB
     Indication: ADENOCARCINOMA GASTRIC
     Dosage: LAST DOSE PRIOR TO SAE 08/AUG/2016
     Route: 065
     Dates: start: 20160718
  2. TRASTUZUMAB [Suspect]
     Active Substance: TRASTUZUMAB
     Indication: ADENOCARCINOMA GASTRIC
     Dosage: LAST DOSE PRIOR TO SAE 08/AUG/2016
     Route: 065
     Dates: start: 20160718
  3. FOLINIC ACID [Suspect]
     Active Substance: LEUCOVORIN
     Indication: ADENOCARCINOMA GASTRIC
     Dosage: LAST DOSE PRIOR TO SAE 15/AUG/2016
     Route: 065
  4. FLUOROURACIL. [Suspect]
     Active Substance: FLUOROURACIL
     Indication: ADENOCARCINOMA GASTRIC
     Dosage: LAST DOSE PRIOR TO SAE 15/AUG/2016
     Route: 065
  5. DOCETAXEL. [Suspect]
     Active Substance: DOCETAXEL
     Indication: ADENOCARCINOMA GASTRIC
     Dosage: LAST DOSE 18/JUL/2016
     Route: 065
  6. OXALIPLATIN. [Suspect]
     Active Substance: OXALIPLATIN
     Indication: ADENOCARCINOMA GASTRIC
     Dosage: LAST DOSE PRIOR TO SAE 15/AUG/2016
     Route: 065

REACTIONS (1)
  - Hypertension [Recovered/Resolved]

NARRATIVE: CASE EVENT DATE: 20160815
